FAERS Safety Report 9151305 (Version 1)
Quarter: 2013Q1

REPORT INFORMATION
  Report Type: Spontaneous
  Country: GB (occurrence: GB)
  Receive Date: 20130308
  Receipt Date: 20130308
  Transmission Date: 20140127
  Serious: Yes (Other)
  Sender: FDA-Public Use
  Company Number: GB-ROCHE-1199400

PATIENT
  Age: 32 Year
  Sex: Male

DRUGS (3)
  1. CLONAZEPAM [Suspect]
     Indication: CONVULSION
     Route: 048
     Dates: start: 20120126
  2. CLONAZEPAM [Suspect]
     Route: 048
     Dates: start: 20120126
  3. METHADONE [Concomitant]
     Indication: DRUG WITHDRAWAL SYNDROME
     Route: 048
     Dates: start: 20130126

REACTIONS (1)
  - Anticonvulsant drug level below therapeutic [Unknown]
